FAERS Safety Report 4773670-6 (Version None)
Quarter: 2005Q3

REPORT INFORMATION
  Report Type: 
  Country: None (occurrence: None)
  Receive Date: 20050920
  Receipt Date: 20050829
  Transmission Date: 20060218
  Serious: Yes (Hospitalization)
  Sender: FDA-Public Use
  Company Number: JP-ABBOTT-05P-087-0309865-00

PATIENT
  Sex: Female
  Weight: 47 kg

DRUGS (6)
  1. KLARICID [Suspect]
     Indication: WOUND INFECTION
     Route: 048
     Dates: start: 20050822, end: 20050824
  2. CEFTRIAXZONE [Concomitant]
     Indication: WOUND INFECTION
     Route: 042
     Dates: start: 20050822, end: 20050829
  3. CLINDAMYCIN [Concomitant]
     Indication: WOUND INFECTION
     Route: 042
     Dates: start: 20050822, end: 20050829
  4. MEROPENEM TRIHYDRATE [Concomitant]
     Indication: STAPHYLOCOCCAL INFECTION
     Route: 042
     Dates: start: 20050821, end: 20050823
  5. TEICOPLANIN [Concomitant]
     Indication: STAPHYLOCOCCAL INFECTION
     Route: 042
     Dates: start: 20050821, end: 20050823
  6. METHYLPREDNISOLONE SODIUM SUCCINATE [Concomitant]
     Indication: DRUG USE FOR UNKNOWN INDICATION
     Route: 042
     Dates: start: 20050822, end: 20050825

REACTIONS (4)
  - CYANOSIS [None]
  - ELECTROCARDIOGRAM QT PROLONGED [None]
  - RESPIRATORY DISTRESS [None]
  - SINUS BRADYCARDIA [None]
